FAERS Safety Report 9810949 (Version 4)
Quarter: 2015Q3

REPORT INFORMATION
  Report Type: Spontaneous
  Country: US (occurrence: US)
  Receive Date: 20140110
  Receipt Date: 20150727
  Transmission Date: 20151125
  Serious: Yes (Other)
  Sender: FDA-Public Use
  Company Number: US-SANOFI-AVENTIS-2013SA000432

PATIENT
  Age: 59 Year
  Sex: Male

DRUGS (3)
  1. PLAVIX [Suspect]
     Active Substance: CLOPIDOGREL BISULFATE
     Indication: TRANSIENT ISCHAEMIC ATTACK
     Route: 048
     Dates: start: 20070701, end: 20110201
  2. PLAVIX [Suspect]
     Active Substance: CLOPIDOGREL BISULFATE
     Indication: PERIPHERAL ARTERIAL OCCLUSIVE DISEASE
     Route: 048
     Dates: start: 20070701, end: 20110201
  3. ASPIRIN. [Concomitant]
     Active Substance: ASPIRIN
     Dates: start: 1998, end: 2007

REACTIONS (6)
  - Gastrointestinal haemorrhage [Recovered/Resolved]
  - Haematochezia [Unknown]
  - Epistaxis [Unknown]
  - Cerebrovascular accident [Recovered/Resolved]
  - Multiple injuries [Recovered/Resolved]
  - Mental disorder [Unknown]

NARRATIVE: CASE EVENT DATE: 200909
